FAERS Safety Report 8122340-5 (Version None)
Quarter: 2012Q1

REPORT INFORMATION
  Report Type: 
  Country: None (occurrence: None)
  Receive Date: 20120208
  Receipt Date: 20120201
  Transmission Date: 20120608
  Serious: Yes (Other)
  Sender: FDA-Public Use
  Company Number: US-US-EMD SERONO, INC.-7016175

PATIENT
  Sex: Female
  Weight: 73 kg

DRUGS (2)
  1. REBIF [Suspect]
     Indication: MULTIPLE SCLEROSIS
     Route: 058
     Dates: start: 20070925
  2. TOPROL-XL [Concomitant]
     Indication: HYPERTENSION
     Route: 048

REACTIONS (1)
  - MENISCUS LESION [None]
